FAERS Safety Report 6067895-X (Version None)
Quarter: 2009Q1

REPORT INFORMATION
  Report Type: 
  Country: None (occurrence: None)
  Receive Date: 20090203
  Receipt Date: 20090126
  Transmission Date: 20090719
  Serious: Yes (Hospitalization)
  Sender: FDA-Public Use
  Company Number: 230040K09CAN

PATIENT
  Sex: Female

DRUGS (3)
  1. REBIF [Suspect]
     Indication: RELAPSING-REMITTING MULTIPLE SCLEROSIS
     Dosage: 44 MCG, 3 IN 1 WEEKS
     Dates: start: 20081030
  2. PAXIL [Concomitant]
  3. NAPROXEN [Concomitant]

REACTIONS (6)
  - BEDRIDDEN [None]
  - GAIT DISTURBANCE [None]
  - HYPOAESTHESIA [None]
  - IATROGENIC INJURY [None]
  - INGUINAL HERNIA [None]
  - NIGHT SWEATS [None]
